FAERS Safety Report 8102501-1 (Version None)
Quarter: 2012Q1

REPORT INFORMATION
  Report Type: 
  Country: None (occurrence: None)
  Receive Date: 20120201
  Receipt Date: 20120120
  Transmission Date: 20120608
  Serious: Yes (Hospitalization)
  Sender: FDA-Public Use
  Company Number: US-BAYER-2011-073292

PATIENT
  Age: 45 Year
  Sex: Female
  Weight: 99.773 kg

DRUGS (11)
  1. NAPROSYN [Concomitant]
     Dosage: 550 MG, BID
     Route: 048
     Dates: start: 20050930
  2. GLUCOPHAGE [Concomitant]
  3. ULTRACET [Concomitant]
     Dosage: ONE OR TWO, HS
     Route: 048
     Dates: start: 20050930
  4. YAZ [Suspect]
  5. TOPROL-XL [Concomitant]
     Dosage: 50 MG, DAILY
     Route: 048
     Dates: start: 20050930
  6. DYAZIDE [Concomitant]
     Dosage: 37.5/25 DAILY
     Route: 048
     Dates: start: 20050930
  7. YASMIN [Suspect]
  8. SKELAXIN [Concomitant]
     Dosage: 400-800, HS
     Dates: start: 20050930
  9. BENADRYL [Concomitant]
     Dosage: UNK
     Dates: start: 20050930
  10. DROSPIRENONE AND ETHINYL ESTRADIOL [Suspect]
  11. METFORMIN HCL [Concomitant]
     Dosage: 500 MG, BID
     Route: 048
     Dates: start: 20050930

REACTIONS (3)
  - PULMONARY EMBOLISM [None]
  - INJURY [None]
  - PAIN [None]
